FAERS Safety Report 8499585-8 (Version None)
Quarter: 2012Q3

REPORT INFORMATION
  Report Type: 
  Country: None (occurrence: None)
  Receive Date: 20120710
  Receipt Date: 20120627
  Transmission Date: 20120928
  Serious: Yes (Death)
  Sender: FDA-Public Use
  Company Number: AU-COVIDIEN/TYCO HEALTHCARE/MALLINCKRODT-T201202684

PATIENT
  Age: 57 Year
  Sex: Male

DRUGS (4)
  1. FLUOXETINE [Suspect]
     Dosage: UNK
  2. ETHANOL [Suspect]
  3. MIRTAZAPINE [Suspect]
  4. TEMAZEPAM [Suspect]
     Dosage: UNK

REACTIONS (1)
  - OVERDOSE [None]
